FAERS Safety Report 14390530 (Version 1)
Quarter: 2018Q1

REPORT INFORMATION
  Report Type: Spontaneous
  Country: US (occurrence: US)
  Receive Date: 20180116
  Receipt Date: 20180116
  Transmission Date: 20180509
  Serious: No
  Sender: FDA-Public Use
  Company Number: US-TEVA-2018-US-845294

PATIENT
  Age: 74 Year
  Sex: Male

DRUGS (4)
  1. PROAIR HFA [Suspect]
     Active Substance: ALBUTEROL SULFATE
     Indication: CHEST DISCOMFORT
     Dosage: 1 PUFF EVERY 4 TO 6 HOURS
     Route: 065
     Dates: start: 20180105, end: 20180107
  2. PROAIR HFA [Suspect]
     Active Substance: ALBUTEROL SULFATE
     Indication: BREATH SOUNDS ABNORMAL
  3. SOLATOL [Concomitant]
     Indication: BLOOD PRESSURE MEASUREMENT
  4. PRAVASTATIN. [Concomitant]
     Active Substance: PRAVASTATIN
     Indication: PRODUCT USED FOR UNKNOWN INDICATION

REACTIONS (1)
  - Myalgia [Unknown]
